FAERS Safety Report 7988827-0 (Version None)
Quarter: 2011Q4

REPORT INFORMATION
  Report Type: 
  Country: None (occurrence: None)
  Receive Date: 20111219
  Receipt Date: 20111209
  Transmission Date: 20120403
  Serious: Yes (Disabling)
  Sender: FDA-Public Use
  Company Number: JP-SP-2011-10816

PATIENT
  Sex: Male

DRUGS (2)
  1. IMMUCYST [Suspect]
     Indication: BLADDER CANCER
     Dosage: NOT REPORTED
     Route: 043
     Dates: start: 20100907, end: 20101001
  2. CILIDIPINE [Concomitant]

REACTIONS (2)
  - RENAL TUBERCULOSIS [None]
  - RENAL MASS [None]
